FAERS Safety Report 20019392 (Version 1)
Quarter: 2021Q4

REPORT INFORMATION
  Report Type: Spontaneous
  Country: TR (occurrence: TR)
  Receive Date: 20211101
  Receipt Date: 20211101
  Transmission Date: 20220303
  Serious: Yes (Life-Threatening, Other)
  Sender: FDA-Public Use
  Company Number: TR-PFIZER INC-202101401493

PATIENT
  Age: 33 Year
  Sex: Male

DRUGS (10)
  1. METHYLPREDNISOLONE SODIUM SUCCINATE [Suspect]
     Active Substance: METHYLPREDNISOLONE SODIUM SUCCINATE
     Indication: Behcet^s syndrome
     Dosage: 500 MG
  2. METHYLPREDNISOLONE SODIUM SUCCINATE [Suspect]
     Active Substance: METHYLPREDNISOLONE SODIUM SUCCINATE
     Dosage: 48 MG
  3. METHYLPREDNISOLONE SODIUM SUCCINATE [Suspect]
     Active Substance: METHYLPREDNISOLONE SODIUM SUCCINATE
     Dosage: 24 MG, 1X/DAY
  4. METHYLPREDNISOLONE SODIUM SUCCINATE [Suspect]
     Active Substance: METHYLPREDNISOLONE SODIUM SUCCINATE
     Dosage: 500 MG (SALVAGE TREATMENT )
  5. METHYLPREDNISOLONE SODIUM SUCCINATE [Suspect]
     Active Substance: METHYLPREDNISOLONE SODIUM SUCCINATE
     Dosage: 48 MG, 1X/DAY
  6. PREDNISOLONE [Suspect]
     Active Substance: PREDNISOLONE
     Indication: Behcet^s syndrome
     Dosage: 1 MG/KG, 1X/DAY
  7. CYCLOSPORINE [Suspect]
     Active Substance: CYCLOSPORINE
     Indication: Behcet^s syndrome
     Dosage: 5 MG/KG, 1X/DAY
  8. INFLIXIMAB [Concomitant]
     Active Substance: INFLIXIMAB
     Indication: Osteonecrosis
     Dosage: 5 MG/KG
  9. INFLIXIMAB [Concomitant]
     Active Substance: INFLIXIMAB
     Indication: Lymphopenia
     Dosage: 5 MG/KG (EVERY SIX WEEKS)
  10. CYCLOPHOSPHAMIDE [Concomitant]
     Active Substance: CYCLOPHOSPHAMIDE
     Indication: Behcet^s syndrome
     Dosage: 1 G, MONTHLY (12 CYCLES)

REACTIONS (2)
  - Pulmonary thrombosis [Unknown]
  - Drug ineffective [Unknown]
